FAERS Safety Report 4945425-0 (Version None)
Quarter: 2006Q1

REPORT INFORMATION
  Report Type: 
  Country: None (occurrence: None)
  Receive Date: 20060316
  Receipt Date: 20040505
  Transmission Date: 20060701
  Serious: Yes (Congenital Anomaly)
  Sender: FDA-Public Use
  Company Number: US-GLAXOSMITHKLINE-A0589935A

PATIENT
  Sex: Male
  Weight: 3.1 kg

DRUGS (1)
  1. LAMICTAL [Suspect]
     Indication: EPILEPSY

REACTIONS (4)
  - ANORECTAL OPERATION [None]
  - DRUG EXPOSURE DURING PREGNANCY [None]
  - HERNIA [None]
  - HERNIA REPAIR [None]
